FAERS Safety Report 8549644-6 (Version None)
Quarter: 2012Q3

REPORT INFORMATION
  Report Type: 
  Country: None (occurrence: None)
  Receive Date: 20120730
  Receipt Date: 20120719
  Transmission Date: 20120928
  Serious: Yes (Other)
  Sender: FDA-Public Use
  Company Number: CN-ASTRAZENECA-2012SE50729

PATIENT
  Age: 72 Year
  Sex: Female

DRUGS (3)
  1. NEXIUM [Suspect]
     Indication: GASTRIC ULCER
     Route: 048
     Dates: start: 20120423
  2. REBAMIPIDE [Concomitant]
     Indication: GASTRITIS
     Dosage: THREE TIMES A DAY
     Route: 048
  3. REBAMIPIDE [Concomitant]
     Indication: GASTRIC ULCER
     Dosage: THREE TIMES A DAY
     Route: 048

REACTIONS (3)
  - RENAL IMPAIRMENT [None]
  - TUBULOINTERSTITIAL NEPHRITIS [None]
  - BLOOD CREATININE INCREASED [None]
